FAERS Safety Report 6774743-9 (Version None)
Quarter: 2010Q2

REPORT INFORMATION
  Report Type: 
  Country: None (occurrence: None)
  Receive Date: 20100617
  Receipt Date: 20100614
  Transmission Date: 20101027
  Serious: Yes (Other)
  Sender: FDA-Public Use
  Company Number: US-BRISTOL-MYERS SQUIBB COMPANY-15148943

PATIENT
  Age: 80 Year
  Sex: Female

DRUGS (2)
  1. COUMADIN [Suspect]
     Route: 065
  2. METHYLCELLULOSE [Suspect]
     Dosage: SUSPENSION FOR INJ.SUGAR FREE ORANGE.

REACTIONS (2)
  - BLOOD TEST ABNORMAL [None]
  - COAGULOPATHY [None]
